FAERS Safety Report 19429432 (Version 2)
Quarter: 2022Q2

REPORT INFORMATION
  Report Type: Spontaneous
  Country: CA (occurrence: CA)
  Receive Date: 20210617
  Receipt Date: 20220511
  Transmission Date: 20220721
  Serious: Yes (Death, Hospitalization)
  Sender: FDA-Public Use
  Company Number: None

PATIENT
  Age: 48 Year
  Sex: Male

DRUGS (19)
  1. GEMCITABINE [Suspect]
     Active Substance: GEMCITABINE
     Indication: Pancreatic carcinoma
     Dosage: 1 EVERY 4?WEEKS
     Route: 042
  2. DURVALUMAB [Suspect]
     Active Substance: DURVALUMAB
     Indication: Pancreatic carcinoma
     Dosage: 1 EVERY 4?WEEKS
     Route: 042
  3. TREMELIMUMAB [Suspect]
     Active Substance: TREMELIMUMAB
     Indication: Pancreatic carcinoma
     Dosage: 1 EVERY 4 WEEKS
     Route: 042
  4. ABRAXANE [Suspect]
     Active Substance: PACLITAXEL
     Indication: Pancreatic carcinoma
     Dosage: 1 EVERY 4 WEEKS
     Route: 042
  5. DICLOFENAC [Concomitant]
     Active Substance: DICLOFENAC
     Indication: Analgesic intervention supportive therapy
     Route: 065
  6. Dilaudin [Concomitant]
     Indication: Abdominal pain
     Route: 065
  7. DULCOLAX NOS [Concomitant]
     Active Substance: BISACODYL OR DOCUSATE SODIUM
     Indication: Constipation
     Route: 065
  8. GRAVOL [Concomitant]
     Active Substance: DIMENHYDRINATE
     Indication: Prophylaxis of nausea and vomiting
     Route: 065
  9. HUMALOG [Concomitant]
     Active Substance: INSULIN LISPRO
     Indication: Diabetes mellitus
  10. INSULIN NOS [Concomitant]
     Active Substance: INSULIN NOS
     Indication: Prophylaxis of nausea and vomiting
     Dosage: ALSO RECEIVED GLOBULES ORAL
  11. METFORMIN [Concomitant]
     Active Substance: METFORMIN HYDROCHLORIDE
     Indication: Diabetes mellitus
     Route: 065
  12. METOCLOPRAMIDE [Concomitant]
     Active Substance: METOCLOPRAMIDE
     Indication: Prophylaxis of nausea and vomiting
  13. PANCREATIN [Concomitant]
     Active Substance: PANCRELIPASE
     Indication: Nutritional supplementation
  14. PREDNISONE [Concomitant]
     Active Substance: PREDNISONE
     Indication: Analgesic intervention supportive therapy
     Dosage: 1 EVERY 1 DAYS
     Route: 065
  15. RABEPRAZOLE [Concomitant]
     Active Substance: RABEPRAZOLE
     Indication: Gastrooesophageal reflux disease
     Route: 065
  16. POLYETHYLENE GLYCOL 3350 [Concomitant]
     Active Substance: POLYETHYLENE GLYCOL 3350
     Indication: Constipation
     Dosage: POWDER FOR SOLUTION ORAL
  17. SENOKOT [Concomitant]
     Active Substance: SENNOSIDES
     Indication: Constipation
  18. VENTOLIN [Concomitant]
     Active Substance: ALBUTEROL SULFATE
     Indication: Dyspnoea
  19. ZOPICLONE [Concomitant]
     Active Substance: ZOPICLONE
     Indication: Insomnia

REACTIONS (4)
  - Cerebrovascular accident [Fatal]
  - Dyspnoea [Fatal]
  - Muscular weakness [Fatal]
  - Pneumonitis [Fatal]
